FAERS Safety Report 7051280-8 (Version None)
Quarter: 2010Q4

REPORT INFORMATION
  Report Type: 
  Country: None (occurrence: None)
  Receive Date: 20101014
  Receipt Date: 20101004
  Transmission Date: 20110411
  Serious: Yes (Hospitalization)
  Sender: FDA-Public Use
  Company Number: 1000016608

PATIENT
  Age: 42 Year
  Sex: Female
  Weight: 68 kg

DRUGS (3)
  1. SAVELLA [Suspect]
     Indication: FIBROMYALGIA
     Dosage: 50 MG (50 MG, 1 IN 1 D), ORAL
     Route: 048
     Dates: start: 20100319, end: 20100402
  2. LYRICA [Suspect]
     Indication: FIBROMYALGIA
     Dosage: 50 MG (50 MG, 1 IN 1 D), ORAL
     Route: 048
     Dates: start: 20100319, end: 20100402
  3. INSULIN (INSULIN) (INSULIN) [Concomitant]

REACTIONS (3)
  - ACUTE HEPATIC FAILURE [None]
  - AUTOIMMUNE HEPATITIS [None]
  - HEPATOTOXICITY [None]
